FAERS Safety Report 12246855 (Version 2)
Quarter: 2016Q2

REPORT INFORMATION
  Report Type: Report from Study
  Country: US (occurrence: US)
  Receive Date: 20160407
  Receipt Date: 20160422
  Transmission Date: 20160815
  Serious: No
  Sender: FDA-Public Use
  Company Number: US-AMGEN-USASL2016040378

PATIENT
  Age: 74 Year
  Sex: Female

DRUGS (1)
  1. ENBREL [Suspect]
     Active Substance: ETANERCEPT
     Indication: PSORIASIS
     Dosage: 50 MG, 2 TIMES/WK
     Route: 065
     Dates: start: 20160314

REACTIONS (6)
  - Injection site rash [Unknown]
  - Hot flush [Unknown]
  - Psoriasis [Not Recovered/Not Resolved]
  - Alopecia [Unknown]
  - Feeling cold [Unknown]
  - Injection site irritation [Unknown]

NARRATIVE: CASE EVENT DATE: 2016
